FAERS Safety Report 6977533 (Version 6)
Quarter: 2013Q1

REPORT INFORMATION
  Report Type: Report from Study
  Country: ES (occurrence: ES)
  Receive Date: 20090424
  Receipt Date: 20130329
  Transmission Date: 20140127
  Serious: Yes (Death, Life-Threatening, Hospitalization, Other)
  Sender: FDA-Public Use
  Company Number: ES-CELGENEUS-144-50794-09041711

PATIENT
  Age: 71 Year
  Sex: Male
  Weight: 66 kg

DRUGS (30)
  1. VIDAZA [Suspect]
     Indication: ACUTE MYELOID LEUKAEMIA
     Route: 058
     Dates: start: 20081218, end: 20081224
  2. VIDAZA [Suspect]
     Route: 058
     Dates: start: 20090115, end: 20090120
  3. INSULIN [Concomitant]
     Indication: DIABETES MELLITUS
     Dosage: VARIABLE
     Route: 065
  4. ENALAPRIL [Concomitant]
     Indication: HYPERTENSION
     Route: 065
  5. CAPTOPRIL [Concomitant]
     Indication: HYPERTENSION
     Route: 065
  6. ACARBOSA [Concomitant]
     Indication: DIABETES MELLITUS
     Route: 065
  7. DIGOXIN [Concomitant]
     Indication: CARDIOMYOPATHY
     Route: 065
  8. ALLOPURINOL [Concomitant]
     Indication: HYPERURICAEMIA
     Dosage: 100-300
     Route: 065
  9. ALLOPURINOL [Concomitant]
     Indication: GOUT
  10. FUROSEMIDE [Concomitant]
     Indication: CARDIOMYOPATHY
     Route: 065
  11. FUROSEMIDE [Concomitant]
     Indication: HEPATIC FAILURE
  12. ACENOCOUMAROL [Concomitant]
     Indication: ATRIAL FIBRILLATION
     Route: 065
     Dates: end: 20081125
  13. SODIUM HEPARIN [Concomitant]
     Indication: ATRIAL FIBRILLATION
     Dosage: VARIABLE
     Route: 065
     Dates: start: 20081120, end: 20081125
  14. ENOXAPARIN [Concomitant]
     Indication: ATRIAL FIBRILLATION
     Dosage: 60-80
     Route: 065
     Dates: start: 20081125
  15. PANTOPRAZOLE [Concomitant]
     Indication: PRODUCT USED FOR UNKNOWN INDICATION
     Route: 065
     Dates: start: 20081125
  16. ALBUMIN [Concomitant]
     Indication: HYPOALBUMINAEMIA
     Route: 065
     Dates: start: 20081204, end: 20090202
  17. ALBUMIN [Concomitant]
     Indication: OEDEMA
  18. FLUCONAZOLE [Concomitant]
     Indication: CANDIDURIA
     Route: 065
     Dates: start: 20081209, end: 20081219
  19. CIPROFLOXACIN [Concomitant]
     Indication: SALMONELLOSIS
     Dosage: 500 UNKNOWN
     Route: 065
     Dates: start: 20081201, end: 20081208
  20. CIPROFLOXACIN [Concomitant]
     Indication: RESPIRATORY TRACT INFECTION
     Dosage: 1500 UNKNOWN
     Route: 065
     Dates: start: 20090126, end: 20090130
  21. MEROPENEM [Concomitant]
     Indication: PNEUMONIA
     Dosage: 3 GRAM
     Route: 041
     Dates: start: 20081125, end: 20081206
  22. IMIPENEM [Concomitant]
     Indication: RECTAL ABSCESS
     Route: 065
     Dates: start: 20081125, end: 20081125
  23. PLATELETS [Concomitant]
     Indication: RECTAL HAEMORRHAGE
     Route: 041
     Dates: start: 200812
  24. MORPHINE [Concomitant]
     Indication: PROCTALGIA
     Route: 041
     Dates: start: 20081218
  25. MORPHINE [Concomitant]
     Route: 065
  26. TAZOBACTAM [Concomitant]
     Indication: FEBRILE NEUTROPENIA
     Dosage: 2 GRAM
     Route: 041
     Dates: start: 20090108, end: 20090113
  27. TAZOBACTAM [Concomitant]
     Indication: RECTAL ABSCESS
     Route: 041
     Dates: start: 20081120, end: 20081125
  28. TAZOBACTAM [Concomitant]
     Indication: BACTERAEMIA
     Route: 041
     Dates: start: 20081208, end: 20081222
  29. TAZOBACTAM [Concomitant]
     Indication: CELLULITIS
  30. RED BLOOD CELLS [Concomitant]
     Indication: RECTAL HAEMORRHAGE
     Route: 041
     Dates: start: 200812

REACTIONS (9)
  - Systemic inflammatory response syndrome [Fatal]
  - Bone marrow failure [Fatal]
  - Sepsis [Fatal]
  - Hepatic failure [Not Recovered/Not Resolved]
  - Thrombocytopenia [Not Recovered/Not Resolved]
  - Respiratory tract infection [Not Recovered/Not Resolved]
  - Rectal cancer stage 0 [Not Recovered/Not Resolved]
  - Febrile neutropenia [Recovered/Resolved]
  - Hepatotoxicity [Recovered/Resolved]
